FAERS Safety Report 11182946 (Version 1)
Quarter: 2015Q2

REPORT INFORMATION
  Report Type: Spontaneous
  Country: US (occurrence: US)
  Receive Date: 20150611
  Receipt Date: 20150611
  Transmission Date: 20150821
  Serious: No
  Sender: FDA-Public Use
  Company Number: US-LUNDBECK-DKLU1112667

PATIENT
  Sex: Female

DRUGS (2)
  1. SABRIL [Suspect]
     Active Substance: VIGABATRIN
     Indication: INFANTILE SPASMS
     Route: 048
     Dates: start: 20150403, end: 20150505
  2. SABRIL [Suspect]
     Active Substance: VIGABATRIN
     Dosage: STARTED WEAN OFF OF SABRIL
     Route: 048
     Dates: start: 20150505

REACTIONS (1)
  - Drug ineffective [Unknown]
